FAERS Safety Report 17184405 (Version 1)
Quarter: 2019Q4

REPORT INFORMATION
  Report Type: Spontaneous
  Country: US (occurrence: US)
  Receive Date: 20191219
  Receipt Date: 20191219
  Transmission Date: 20200122
  Serious: No
  Sender: FDA-Public Use
  Company Number: None

PATIENT
  Age: 47 Year
  Sex: Female

DRUGS (1)
  1. WAKIX [Suspect]
     Active Substance: PITOLISANT HYDROCHLORIDE
     Indication: NARCOLEPSY
     Dosage: ?          OTHER STRENGTH:TABLET;QUANTITY:2 TABLET(S);?
     Route: 048
     Dates: start: 20191121, end: 20191203

REACTIONS (2)
  - Sensory disturbance [None]
  - Tremor [None]

NARRATIVE: CASE EVENT DATE: 20191121
